FAERS Safety Report 6185289-3 (Version None)
Quarter: 2009Q2

REPORT INFORMATION
  Report Type: 
  Country: None (occurrence: None)
  Receive Date: 20090511
  Receipt Date: 20090430
  Transmission Date: 20091009
  Serious: Yes (Hospitalization, Other)
  Sender: FDA-Public Use
  Company Number: US-ROCHE-577337

PATIENT
  Sex: Male
  Weight: 55.8 kg

DRUGS (3)
  1. ACCUTANE [Suspect]
     Indication: ACNE
     Route: 048
     Dates: start: 20000317, end: 20000510
  2. ACCUTANE [Suspect]
     Route: 048
     Dates: start: 20000511, end: 20000711
  3. ACCUTANE [Suspect]
     Route: 048
     Dates: start: 20000712, end: 20000809

REACTIONS (12)
  - ANAEMIA [None]
  - BLOOD LACTATE DEHYDROGENASE INCREASED [None]
  - COLITIS [None]
  - COLITIS ULCERATIVE [None]
  - DEHYDRATION [None]
  - DEPRESSION [None]
  - DRY SKIN [None]
  - INFLAMMATORY BOWEL DISEASE [None]
  - LIP DRY [None]
  - NEPHROLITHIASIS [None]
  - POST PROCEDURAL HAEMORRHAGE [None]
  - SMALL INTESTINAL OBSTRUCTION [None]
